FAERS Safety Report 5203822-2 (Version None)
Quarter: 2007Q1

REPORT INFORMATION
  Report Type: 
  Country: None (occurrence: None)
  Receive Date: 20070105
  Receipt Date: 20061225
  Transmission Date: 20070707
  Serious: Yes (Hospitalization, Other)
  Sender: FDA-Public Use
  Company Number: 2006SP008963

PATIENT
  Age: 48 Year
  Sex: Male
  Weight: 90.7194 kg

DRUGS (2)
  1. PEG-INTRON [Suspect]
     Indication: HEPATITIS C
     Dosage: 150 MCG;QW;SC
     Route: 058
     Dates: start: 20060908, end: 20061222
  2. REBETOL [Suspect]
     Indication: HEPATITIS C
     Dosage: 600 MG;BID;PO
     Route: 048
     Dates: start: 20060908, end: 20061224

REACTIONS (13)
  - ASTHENIA [None]
  - BALANCE DISORDER [None]
  - BLISTER [None]
  - BLOOD SODIUM DECREASED [None]
  - COORDINATION ABNORMAL [None]
  - FALL [None]
  - HYPOTENSION [None]
  - INJECTION SITE INFLAMMATION [None]
  - LETHARGY [None]
  - MOTOR DYSFUNCTION [None]
  - PAIN [None]
  - PRURITUS [None]
  - REFUSAL OF TREATMENT BY PATIENT [None]
